APPROVED DRUG PRODUCT: NORMOSOL-R IN PLASTIC CONTAINER
Active Ingredient: MAGNESIUM CHLORIDE; POTASSIUM CHLORIDE; SODIUM ACETATE; SODIUM CHLORIDE; SODIUM GLUCONATE
Strength: 30MG/100ML;37MG/100ML;222MG/100ML;526MG/100ML;502MG/100ML
Dosage Form/Route: INJECTABLE;INJECTION
Application: N017586 | Product #001
Applicant: OTSUKA ICU MEDICAL LLC
Approved: Approved Prior to Jan 1, 1982 | RLD: No | RS: No | Type: RX